FAERS Safety Report 22304245 (Version 1)
Quarter: 2023Q2

REPORT INFORMATION
  Report Type: Spontaneous
  Country: US (occurrence: None)
  Receive Date: 20230509
  Receipt Date: 20230509
  Transmission Date: 20230721
  Serious: Yes (Hospitalization)
  Sender: FDA-Public Use
  Company Number: None

PATIENT
  Sex: Female

DRUGS (2)
  1. HUMIRA [Suspect]
     Active Substance: ADALIMUMAB
     Indication: Hidradenitis
     Dosage: 80MG EVERY 7 DAYS SUBQ?
     Route: 058
     Dates: start: 202107
  2. SPIRONOLACTONE [Suspect]
     Active Substance: SPIRONOLACTONE

REACTIONS (7)
  - Hidradenitis [None]
  - Condition aggravated [None]
  - Fatigue [None]
  - Pain [None]
  - Decreased appetite [None]
  - Dehydration [None]
  - Skin lesion inflammation [None]

NARRATIVE: CASE EVENT DATE: 20230401
